FAERS Safety Report 13035517 (Version 1)
Quarter: 2016Q4

REPORT INFORMATION
  Report Type: Spontaneous
  Country: US (occurrence: US)
  Receive Date: 20161216
  Receipt Date: 20161216
  Transmission Date: 20170207
  Serious: No
  Sender: FDA-Public Use
  Company Number: US-ASTELLAS-2016US021295

PATIENT
  Sex: Female

DRUGS (1)
  1. TARCEVA [Suspect]
     Active Substance: ERLOTINIB HYDROCHLORIDE
     Indication: BRAIN NEOPLASM
     Dosage: UNK UNK, UNKNOWN FREQ.
     Route: 048

REACTIONS (10)
  - Pharyngeal ulceration [Recovering/Resolving]
  - Skin burning sensation [Recovering/Resolving]
  - Stomatitis [Recovering/Resolving]
  - Blister [Recovering/Resolving]
  - Blister rupture [Recovering/Resolving]
  - Mouth ulceration [Recovering/Resolving]
  - Pruritus [Recovering/Resolving]
  - Off label use [Unknown]
  - Erythema [Recovering/Resolving]
  - Rash [Recovering/Resolving]
